FAERS Safety Report 24916862 (Version 1)
Quarter: 2025Q1

REPORT INFORMATION
  Report Type: Spontaneous
  Country: US (occurrence: None)
  Receive Date: 20250131
  Receipt Date: 20250131
  Transmission Date: 20250409
  Serious: Yes (Life-Threatening)
  Sender: FDA-CTU
  Company Number: None

PATIENT
  Age: 78 Year
  Sex: Female
  Weight: 59.1 kg

DRUGS (2)
  1. CEFTRIAXONE [Suspect]
     Active Substance: CEFTRIAXONE
     Indication: Infection
     Route: 040
  2. IOPAMIDOL [Suspect]
     Active Substance: IOPAMIDOL
     Dates: start: 20250131, end: 20250131

REACTIONS (4)
  - Anaphylactic reaction [None]
  - Dysphonia [None]
  - Hypotension [None]
  - Angioedema [None]

NARRATIVE: CASE EVENT DATE: 20250131
